FAERS Safety Report 5008617-0 (Version None)
Quarter: 2006Q2

REPORT INFORMATION
  Report Type: 
  Country: None (occurrence: None)
  Receive Date: 20060523
  Receipt Date: 20060516
  Transmission Date: 20061013
  Serious: Yes (Hospitalization)
  Sender: FDA-Public Use
  Company Number: IT-ROCHE-448217

PATIENT
  Age: 30 Year
  Sex: Male

DRUGS (7)
  1. ROCEPHIN [Suspect]
     Indication: DRUG USE FOR UNKNOWN INDICATION
     Dosage: FORM REPORTED AS VIAL.
     Route: 030
     Dates: start: 20060421, end: 20060424
  2. ACETAMINOPHEN [Suspect]
     Route: 048
     Dates: start: 20060424, end: 20060425
  3. MOVICOLON [Concomitant]
     Dosage: REPORTED AS MOVICOL.
     Route: 048
  4. FERRO-GRAD [Concomitant]
     Route: 048
  5. PREFOLIC [Concomitant]
     Route: 048
  6. AXAGON [Concomitant]
  7. NORMIX [Concomitant]

REACTIONS (2)
  - PRURITUS [None]
  - URTICARIA [None]
